FAERS Safety Report 8529283 (Version 2)
Quarter: 2012Q4

REPORT INFORMATION
  Report Type: 
  Country: PL (occurrence: PL)
  Receive Date: 20120425
  Receipt Date: 20120921
  Transmission Date: 20130627
  Serious: Yes (Life-Threatening, Hospitalization, Other)
  Sender: FDA-Public Use
  Company Number: PL-BRISTOL-MYERS SQUIBB COMPANY-16526675

PATIENT
  Age: 54 Year
  Sex: Male

DRUGS (1)
  1. YERVOY [Suspect]
     Indication: MALIGNANT MELANOMA
     Dosage: 2nd dose:16Aug11,265mg
3rd dose:08Sep11,270mg
3mg/kg
     Route: 042
     Dates: start: 20110722

REACTIONS (7)
  - Thyrotoxic crisis [Unknown]
  - Hypophysitis [Unknown]
  - Endocrine disorder [Unknown]
  - Hypothyroidism [Unknown]
  - Alopecia [Unknown]
  - Vitiligo [Unknown]
  - Pyrexia [Unknown]
